FAERS Safety Report 7271598-3 (Version None)
Quarter: 2011Q1

REPORT INFORMATION
  Report Type: 
  Country: None (occurrence: None)
  Receive Date: 20110128
  Receipt Date: 20110128
  Transmission Date: 20110831
  Serious: Yes (Life-Threatening, Hospitalization, Disabling, Other)
  Sender: FDA-Public Use
  Company Number: None

PATIENT
  Age: 27 Year
  Sex: Female
  Weight: 65.7716 kg

DRUGS (1)
  1. MIRENA [Suspect]
     Indication: CONTRACEPTION
     Dosage: INSERTION AT TIME 6 YEARS VAG
     Route: 067
     Dates: start: 20080613, end: 20101210

REACTIONS (10)
  - DIVORCED [None]
  - ECONOMIC PROBLEM [None]
  - EMOTIONAL DISORDER [None]
  - DEPRESSION [None]
  - SUICIDAL IDEATION [None]
  - COMPLICATION OF DEVICE REMOVAL [None]
  - DEVICE DISLOCATION [None]
  - PYREXIA [None]
  - ABDOMINAL PAIN [None]
  - VOMITING [None]
